FAERS Safety Report 24549005 (Version 1)
Quarter: 2024Q4

REPORT INFORMATION
  Report Type: Spontaneous
  Country: GB (occurrence: GB)
  Receive Date: 20241025
  Receipt Date: 20241025
  Transmission Date: 20250115
  Serious: Yes (Other)
  Sender: BAXTER
  Company Number: None

PATIENT
  Age: 78 Year
  Sex: Female
  Weight: 68 kg

DRUGS (2)
  1. DEXTROSE [Suspect]
     Active Substance: DEXTROSE MONOHYDRATE
     Dosage: (5% GLUCOSE) AT AN UNSPECIFIED DOSE AND FREQUENCY
     Route: 065
     Dates: start: 20241014
  2. INSULIN HUMAN [Concomitant]
     Active Substance: INSULIN HUMAN
     Route: 065
     Dates: start: 20241014

REACTIONS (2)
  - Medication error [Unknown]
  - Hypoglycaemia [Recovered/Resolved]

NARRATIVE: CASE EVENT DATE: 20241014
